FAERS Safety Report 9826180 (Version 1)
Quarter: 2013Q4

REPORT INFORMATION
  Report Type: Spontaneous
  Country: US (occurrence: None)
  Receive Date: 20131112
  Receipt Date: 20131112
  Transmission Date: 20140711
  Serious: No
  Sender: FDA-Public Use
  Company Number: E2B_00000470

PATIENT
  Age: 50 Year
  Sex: Female
  Weight: 63.5 kg

DRUGS (3)
  1. LISINOPRIL [Suspect]
  2. AZATHIOPRINE (TABLETS) [Concomitant]
  3. MESALAMINE (UNKNOWN) [Concomitant]

REACTIONS (4)
  - Gastrointestinal oedema [None]
  - Oedema peripheral [None]
  - Abdominal discomfort [None]
  - Vomiting [None]
